FAERS Safety Report 4543840-0 (Version None)
Quarter: 2005Q1

REPORT INFORMATION
  Report Type: 
  Country: None (occurrence: None)
  Receive Date: 20050103
  Receipt Date: 20040424
  Transmission Date: 20050727
  Serious: Yes (Hospitalization)
  Sender: FDA-Public Use
  Company Number: GXKR2004GB00536

PATIENT
  Sex: Female

DRUGS (4)
  1. INDOMETHACIN [Suspect]
     Indication: OSTEOARTHRITIS
     Dosage: 25 MG, TID, ORAL
     Route: 048
     Dates: start: 19990101, end: 20021224
  2. CO-TENIDONE (ATENOLOL, CHLORTALIDONE) [Concomitant]
  3. FELODIPINE [Concomitant]
  4. QUININE SULFATE (QUININE SULFATE) [Concomitant]

REACTIONS (4)
  - CEREBROVASCULAR ACCIDENT [None]
  - CIRCULATORY COLLAPSE [None]
  - GASTRITIS [None]
  - GASTROINTESTINAL HAEMORRHAGE [None]
